FAERS Safety Report 7747014-1 (Version None)
Quarter: 2011Q3

REPORT INFORMATION
  Report Type: 
  Country: None (occurrence: None)
  Receive Date: 20110913
  Receipt Date: 20110907
  Transmission Date: 20111222
  Serious: Yes (Other)
  Sender: FDA-Public Use
  Company Number: PHHY2011FR80307

PATIENT
  Sex: Male

DRUGS (3)
  1. SUTENT [Concomitant]
  2. AFINITOR [Suspect]
     Dosage: 5 MG
  3. AFINITOR [Suspect]
     Indication: RENAL CANCER METASTATIC
     Dosage: 10 MG

REACTIONS (1)
  - LUNG DISORDER [None]
